FAERS Safety Report 6911338-8 (Version None)
Quarter: 2010Q3

REPORT INFORMATION
  Report Type: 
  Country: None (occurrence: None)
  Receive Date: 20100806
  Receipt Date: 20100802
  Transmission Date: 20110219
  Serious: Yes (Hospitalization)
  Sender: FDA-Public Use
  Company Number: CN-JNJFOC-20100800918

PATIENT
  Age: 16 Year

DRUGS (1)
  1. SPORANOX [Suspect]
     Indication: SPOROTRICHOSIS
     Route: 048

REACTIONS (2)
  - ABDOMINAL PAIN UPPER [None]
  - HAEMATOCHEZIA [None]
